FAERS Safety Report 9156252 (Version 1)
Quarter: 2013Q1

REPORT INFORMATION
  Report Type: Spontaneous
  Country: US (occurrence: US)
  Receive Date: 20130123
  Receipt Date: 20130123
  Transmission Date: 20140127
  Serious: No
  Sender: FDA-Public Use
  Company Number: US-BRACCO-007457

PATIENT
  Sex: Female
  Weight: 51 kg

DRUGS (2)
  1. HYDROCORTISONE [Concomitant]
     Dosage: ADMINISTERED AT 13 HR, 10 HR, 7 HR, 4 HR AND 1 HR
  2. MULTIHANCE [Suspect]
     Indication: NUCLEAR MAGNETIC RESONANCE IMAGING
     Route: 042
     Dates: start: 20120123, end: 20120123

REACTIONS (6)
  - Extravasation [Recovering/Resolving]
  - Phlebitis [Recovering/Resolving]
  - Urticaria [Recovering/Resolving]
  - Nausea [Recovering/Resolving]
  - Injection site pain [Recovering/Resolving]
  - Local swelling [Recovering/Resolving]
